FAERS Safety Report 8534916-1 (Version None)
Quarter: 2012Q3

REPORT INFORMATION
  Report Type: 
  Country: None (occurrence: None)
  Receive Date: 20120724
  Receipt Date: 20120712
  Transmission Date: 20120928
  Serious: Yes (Death)
  Sender: FDA-Public Use
  Company Number: CA-ROCHE-738518

PATIENT
  Sex: Male
  Weight: 83 kg

DRUGS (7)
  1. LEUCOVORIN CALCIUM [Concomitant]
     Indication: COLON CANCER
     Dosage: FREQUENCY: DAY 1, DRUG NAME REPORTED AS LUCOVORIN
     Route: 042
  2. DEXAMETHASONE [Concomitant]
  3. AVASTIN [Suspect]
     Indication: COLON CANCER
     Dosage: FREQUENCY: ONCE, DOSE LEVEL: 5 MG/KG
     Route: 042
     Dates: start: 20100915, end: 20100915
  4. NORVASC [Concomitant]
     Indication: HYPERTENSION
     Dosage: DRUG NAME REPORTED AS ^NOVASC^.
  5. KYTRIL [Concomitant]
  6. FLUOROURACIL [Concomitant]
     Indication: COLON CANCER
     Dosage: 650MG/3800MG
     Route: 042
     Dates: start: 20100915
  7. IRINOTECAN HCL [Concomitant]
     Indication: COLON CANCER
     Route: 042
     Dates: start: 20100915

REACTIONS (7)
  - BASAL GANGLIA INFARCTION [None]
  - HEMIPARESIS [None]
  - DYSARTHRIA [None]
  - CEREBROVASCULAR ACCIDENT [None]
  - COMA [None]
  - ISCHAEMIC CEREBRAL INFARCTION [None]
  - HYPOTONIA [None]
